FAERS Safety Report 14727002 (Version 6)
Quarter: 2018Q3

REPORT INFORMATION
  Report Type: Report from Study
  Country: AU (occurrence: AU)
  Receive Date: 20180406
  Receipt Date: 20180809
  Transmission Date: 20181010
  Serious: Yes (Death, Hospitalization)
  Sender: FDA-Public Use
  Company Number: AU-EMD SERONO-9010900

PATIENT
  Age: 57 Year
  Sex: Male
  Weight: 66 kg

DRUGS (10)
  1. NUTRISON ENERGY MULTI FIBRE [Concomitant]
     Indication: DECREASED APPETITE
  2. NORMAL SALINE WITH POTASSIUM [Concomitant]
     Indication: DEHYDRATION
     Dosage: 1 LITRE EVERY 12 HOURS. 2 L DAILY DOSE.
     Route: 042
     Dates: start: 20170111, end: 20170112
  3. FLUOROURACIL. [Suspect]
     Active Substance: FLUOROURACIL
     Indication: OESOPHAGEAL ADENOCARCINOMA
     Route: 042
     Dates: start: 20170117, end: 20170329
  4. OXALIPLATIN. [Suspect]
     Active Substance: OXALIPLATIN
     Indication: OESOPHAGEAL ADENOCARCINOMA
     Route: 042
     Dates: start: 20170117, end: 20170329
  5. COMPOUND SODIUM LACTATE [Concomitant]
     Indication: DEHYDRATION
     Route: 042
     Dates: start: 20170109, end: 20170112
  6. LEUCOVORIN                         /00566701/ [Concomitant]
     Active Substance: LEUCOVORIN
     Indication: OESOPHAGEAL ADENOCARCINOMA
     Route: 042
     Dates: start: 20170117, end: 20170329
  7. COMPOUND SODIUM LACTATE [Concomitant]
     Indication: DECREASED APPETITE
  8. NORMAL SALINE WITH POTASSIUM [Concomitant]
     Indication: DECREASED APPETITE
  9. AVELUMAB [Suspect]
     Active Substance: AVELUMAB
     Indication: OESOPHAGEAL ADENOCARCINOMA
     Route: 042
     Dates: start: 20170424, end: 20170424
  10. NUTRISON ENERGY MULTI FIBRE [Concomitant]
     Indication: MALNUTRITION
     Dosage: ML/HOUR
     Route: 045
     Dates: start: 20170112

REACTIONS (2)
  - Disease progression [Fatal]
  - Decreased appetite [Unknown]

NARRATIVE: CASE EVENT DATE: 20170425
